FAERS Safety Report 10086973 (Version 1)
Quarter: 2014Q2

REPORT INFORMATION
  Report Type: Report from Study
  Country: BR (occurrence: BR)
  Receive Date: 20140418
  Receipt Date: 20140418
  Transmission Date: 20141212
  Serious: Yes (Other)
  Sender: FDA-Public Use
  Company Number: PHHY2014BR047019

PATIENT
  Sex: Female
  Weight: 53 kg

DRUGS (7)
  1. DIOVAN [Suspect]
     Indication: HYPERTENSION
     Dosage: 1 DF, (320 MG) IN MORNING
     Route: 048
  2. NEBILET [Concomitant]
     Indication: BLOOD CHOLESTEROL ABNORMAL
     Dosage: UNK UKN, UNK
  3. ZETSIM [Concomitant]
     Indication: BLOOD CHOLESTEROL ABNORMAL
     Dosage: UNK UKN, UNK
  4. ALPRAZOLAM [Concomitant]
     Indication: INSOMNIA
     Dosage: UNK UKN, UNK
  5. GLIMEPIRIDE [Concomitant]
     Indication: BLOOD GLUCOSE ABNORMAL
     Dosage: UNK UKN, UNK
  6. PLAQ [Concomitant]
     Indication: BLOOD CHOLESTEROL ABNORMAL
     Dosage: UNK UKN, UNK
  7. DOLAMIN FLEX [Concomitant]
     Indication: OSTEOARTHRITIS
     Dosage: UNK UKN, UNK

REACTIONS (5)
  - Cataract [Not Recovered/Not Resolved]
  - Blindness unilateral [Not Recovered/Not Resolved]
  - Visual impairment [Not Recovered/Not Resolved]
  - Nasopharyngitis [Recovered/Resolved]
  - Blood pressure increased [Recovered/Resolved]
